FAERS Safety Report 10183349 (Version 1)
Quarter: 2014Q2

REPORT INFORMATION
  Report Type: Spontaneous
  Country: AT (occurrence: AT)
  Receive Date: 20140520
  Receipt Date: 20140520
  Transmission Date: 20141212
  Serious: Yes (Other)
  Sender: FDA-Public Use
  Company Number: AT-BAYER-2014-072983

PATIENT
  Age: 62 Year
  Sex: Male

DRUGS (2)
  1. SORAFENIB (RAF KINASE INHIBITOR) [Suspect]
     Indication: INTRAOCULAR MELANOMA
     Dosage: 400 MG, BID
     Route: 048
  2. FOTEMUSTINE [Suspect]
     Indication: INTRAOCULAR MELANOMA
     Dosage: 100 MG/M2, EVERY 3 WEEKS

REACTIONS (2)
  - Haematotoxicity [None]
  - Off label use [None]
